FAERS Safety Report 4614348-9 (Version None)
Quarter: 2005Q2

REPORT INFORMATION
  Report Type: 
  Country: None (occurrence: None)
  Receive Date: 20050308
  Receipt Date: 20041109
  Transmission Date: 20051028
  Serious: Yes (Other)
  Sender: FDA-Public Use
  Company Number: 2004UW23092

PATIENT
  Age: 48 Year
  Sex: Female
  Weight: 75.749 kg

DRUGS (3)
  1. CRESTOR [Suspect]
     Indication: BLOOD CHOLESTEROL INCREASED
     Dosage: 10 MG DAILY PO
     Route: 048
     Dates: start: 20040901
  2. LOTREL [Concomitant]
  3. INSULIN [Concomitant]

REACTIONS (1)
  - PHARYNGOLARYNGEAL PAIN [None]
